FAERS Safety Report 6923784-7 (Version None)
Quarter: 2010Q3

REPORT INFORMATION
  Report Type: 
  Country: None (occurrence: None)
  Receive Date: 20100813
  Receipt Date: 20100802
  Transmission Date: 20110219
  Serious: Yes (Hospitalization, Other)
  Sender: FDA-Public Use
  Company Number: GB-ELI_LILLY_AND_COMPANY-GB201006004331

PATIENT
  Sex: Male
  Weight: 123.6 kg

DRUGS (9)
  1. BYETTA [Suspect]
     Indication: TYPE 2 DIABETES MELLITUS
     Dosage: 5 MG, 2/D
     Route: 058
     Dates: start: 20090201, end: 20090501
  2. BYETTA [Suspect]
     Dosage: 10 MG, 2/D
     Route: 058
  3. RAMIPRIL [Concomitant]
     Dosage: 10 MG, DAILY (1/D)
     Route: 065
  4. BENDROFLUMETHIAZIDE [Concomitant]
     Dosage: 2.5 MG, DAILY (1/D)
     Route: 065
  5. ATORVASTATIN [Concomitant]
     Dosage: 10 MG, DAILY (1/D)
     Route: 065
  6. ASPIRIN [Concomitant]
     Dosage: 75 MG, DAILY (1/D)
     Route: 065
  7. METFORMIN HCL [Concomitant]
     Dosage: 750 MG, DAILY (1/D)
     Route: 065
  8. PIOGLITAZONE [Concomitant]
     Dosage: 45 MG, DAILY (1/D)
     Route: 065
  9. INSULIN [Concomitant]
     Dosage: UNK, UNKNOWN
     Route: 065

REACTIONS (4)
  - ABDOMINAL PAIN UPPER [None]
  - PANCREATITIS ACUTE [None]
  - PLEURAL EFFUSION [None]
  - WEIGHT DECREASED [None]
